FAERS Safety Report 7998243-3 (Version None)
Quarter: 2011Q4

REPORT INFORMATION
  Report Type: 
  Country: None (occurrence: None)
  Receive Date: 20111221
  Receipt Date: 20110512
  Transmission Date: 20120403
  Serious: No
  Sender: FDA-Public Use
  Company Number: US-GLAXOSMITHKLINE-A0927167A

PATIENT
  Age: 62 Year
  Sex: Female

DRUGS (7)
  1. ADVICOR [Concomitant]
  2. METFORMIN HCL [Concomitant]
  3. ABILIFY [Concomitant]
  4. EFFEXOR [Concomitant]
  5. ACTOS [Concomitant]
  6. DIAVAN [Concomitant]
  7. LOVAZA [Suspect]
     Indication: BLOOD CHOLESTEROL INCREASED
     Dosage: 2CAP TWICE PER DAY
     Route: 048
     Dates: start: 20110401, end: 20110507

REACTIONS (1)
  - SKIN ODOUR ABNORMAL [None]
